FAERS Safety Report 16189305 (Version 1)
Quarter: 2019Q2

REPORT INFORMATION
  Report Type: Spontaneous
  Country: US (occurrence: US)
  Receive Date: 20190411
  Receipt Date: 20190411
  Transmission Date: 20190711
  Serious: Yes (Other)
  Sender: FDA-Public Use
  Company Number: None

PATIENT
  Age: 62 Year
  Sex: Female
  Weight: 73.8 kg

DRUGS (17)
  1. CALCIUM CARBONATE-VITAMIN D [Concomitant]
     Active Substance: CALCIUM CARBONATE\VITAMIN D
  2. ENOXAPARIN [Concomitant]
     Active Substance: ENOXAPARIN
  3. LORAZEPAM. [Concomitant]
     Active Substance: LORAZEPAM
  4. PENICILLIN [Concomitant]
     Active Substance: PENICILLIN
  5. FERROUS SULFATE. [Concomitant]
     Active Substance: FERROUS SULFATE
  6. FUROSEMIDE. [Concomitant]
     Active Substance: FUROSEMIDE
  7. ONDANSETRON [Concomitant]
     Active Substance: ONDANSETRON
  8. PRAVASTATIN. [Concomitant]
     Active Substance: PRAVASTATIN
  9. TRIAMCINOLONE CR [Concomitant]
  10. WARFARIN [Concomitant]
     Active Substance: WARFARIN
  11. NYSTATIN CREAM [Concomitant]
     Active Substance: NYSTATIN
  12. OXYCODONE-ACETAMINOPHEN [Concomitant]
     Active Substance: ACETAMINOPHEN\OXYCODONE HYDROCHLORIDE
  13. CARAFATE [Concomitant]
     Active Substance: SUCRALFATE
  14. OMEPRAZOLE. [Concomitant]
     Active Substance: OMEPRAZOLE
  15. IBRANCE [Suspect]
     Active Substance: PALBOCICLIB
     Indication: BREAST CANCER FEMALE
     Route: 048
     Dates: start: 20181115, end: 20190409
  16. DIPHENOXYLATE-ATROPINE [Concomitant]
     Active Substance: ATROPINE\DIPHENOXYLATE
  17. LETROZOLE. [Concomitant]
     Active Substance: LETROZOLE

REACTIONS (1)
  - Disease progression [None]

NARRATIVE: CASE EVENT DATE: 20190409
